FAERS Safety Report 21280679 (Version 3)
Quarter: 2022Q4

REPORT INFORMATION
  Report Type: Spontaneous
  Country: CN (occurrence: CN)
  Receive Date: 20220901
  Receipt Date: 20221027
  Transmission Date: 20230112
  Serious: Yes (Hospitalization, Other)
  Sender: FDA-Public Use
  Company Number: CN-NOVARTISPH-NVSC2022CN184969

PATIENT
  Age: 80 Year

DRUGS (1)
  1. ACLASTA [Suspect]
     Active Substance: ZOLEDRONIC ACID
     Indication: Osteoporosis
     Dosage: 1 DOSAGE FORM (5MG/100ML) (ABOUT 30 TO 40 DROPS PER MINUTE)
     Route: 041
     Dates: start: 20220713

REACTIONS (10)
  - Myalgia [Unknown]
  - Eye muscle entrapment [Unknown]
  - Visual acuity reduced [Unknown]
  - Eye swelling [Unknown]
  - Eyelid ptosis [Unknown]
  - Lacrimation disorder [Unknown]
  - Vision blurred [Unknown]
  - Eye pain [Unknown]
  - Ocular hyperaemia [Unknown]
  - Pain [Unknown]

NARRATIVE: CASE EVENT DATE: 20220714
